FAERS Safety Report 4362875-4 (Version None)
Quarter: 2004Q2

REPORT INFORMATION
  Report Type: 
  Country: None (occurrence: None)
  Receive Date: 20040518
  Receipt Date: 20040505
  Transmission Date: 20050107
  Serious: Yes (Hospitalization)
  Sender: FDA-Public Use
  Company Number: 2003006571

PATIENT
  Age: 66 Year
  Sex: Male

DRUGS (5)
  1. VIAGRA [Suspect]
     Indication: PULMONARY HYPERTENSION
     Dosage: 200 MG (4 IN 1 D), ORAL
     Route: 048
  2. AMIODARONE HCL [Concomitant]
  3. WARFARIN SODIUM [Concomitant]
  4. ACETYLSALICYLIC ACID SRT [Concomitant]
  5. DYAZIDE [Concomitant]

REACTIONS (11)
  - BLOOD THYROID STIMULATING HORMONE INCREASED [None]
  - COUGH [None]
  - DYSPNOEA [None]
  - FATIGUE [None]
  - GAMMA-GLUTAMYLTRANSFERASE INCREASED [None]
  - HYPOTHYROIDISM [None]
  - OEDEMA PERIPHERAL [None]
  - PROSTATIC SPECIFIC ANTIGEN INCREASED [None]
  - VENOUS PRESSURE JUGULAR INCREASED [None]
  - VENTRICULAR HYPOKINESIA [None]
  - WHEEZING [None]
